FAERS Safety Report 12704621 (Version 3)
Quarter: 2016Q4

REPORT INFORMATION
  Report Type: Spontaneous
  Country: US (occurrence: US)
  Receive Date: 20160831
  Receipt Date: 20161222
  Transmission Date: 20170207
  Serious: No
  Sender: FDA-Public Use
  Company Number: US-GLAXOSMITHKLINE-US2016122219

PATIENT
  Sex: Female

DRUGS (2)
  1. ALBUTEROL. [Concomitant]
     Active Substance: ALBUTEROL
  2. ADVAIR DISKUS [Suspect]
     Active Substance: FLUTICASONE PROPIONATE\SALMETEROL XINAFOATE
     Indication: ASTHMA
     Dosage: 1 PUFF(S), QD
     Route: 055
     Dates: start: 2006

REACTIONS (6)
  - Bronchospasm [Recovering/Resolving]
  - Underdose [Unknown]
  - Product quality issue [Unknown]
  - Dyspnoea [Recovering/Resolving]
  - Sinus congestion [Recovering/Resolving]
  - Hypoaesthesia [Recovering/Resolving]
